FAERS Safety Report 9296573 (Version 4)
Quarter: 2014Q2

REPORT INFORMATION
  Report Type: Report from Study
  Country: US (occurrence: US)
  Receive Date: 20130517
  Receipt Date: 20140623
  Transmission Date: 20141212
  Serious: No
  Sender: FDA-Public Use
  Company Number: US-VERTEX PHARMACEUTICALS INC-2013-006097

PATIENT
  Age: 21 Year
  Sex: Female
  Weight: 43 kg

DRUGS (1)
  1. IVACAFTOR [Suspect]
     Indication: CYSTIC FIBROSIS
     Dosage: 150 MG, QD
     Route: 048
     Dates: start: 20120214

REACTIONS (3)
  - Lung infection [Not Recovered/Not Resolved]
  - Treatment noncompliance [Unknown]
  - Drug dose omission [Unknown]
